FAERS Safety Report 8020385-7 (Version None)
Quarter: 2012Q1

REPORT INFORMATION
  Report Type: 
  Country: None (occurrence: None)
  Receive Date: 20120103
  Receipt Date: 20111222
  Transmission Date: 20120608
  Serious: Yes (Hospitalization, Other)
  Sender: FDA-Public Use
  Company Number: US-ELI_LILLY_AND_COMPANY-US200908006715

PATIENT
  Sex: Female

DRUGS (20)
  1. FORTEO [Suspect]
     Dosage: 20 UG, QD
     Dates: start: 20110801
  2. NORVASC [Concomitant]
  3. METOPROLOL TARTRATE [Concomitant]
  4. SIMVASTATIN [Concomitant]
  5. CALCIUM ACETATE [Concomitant]
  6. PREVACID [Concomitant]
  7. LEVOTHROID [Concomitant]
  8. ATENOLOL [Concomitant]
  9. HYDROCHLOROTHIAZIDE [Concomitant]
  10. VITAMIN B15 [Concomitant]
  11. POTASSIUM CHLORIDE [Concomitant]
  12. METFORMIN HCL [Concomitant]
  13. ASPIRIN [Concomitant]
  14. FORTEO [Suspect]
     Dosage: 20 UG, DAILY (1/D)
     Dates: end: 20100922
  15. GABAPENTIN [Concomitant]
  16. FORTEO [Suspect]
     Indication: OSTEOPOROSIS
     Dosage: 20 UG, DAILY (1/D)
     Dates: start: 20090801
  17. FORTEO [Suspect]
     Dosage: 20 UG, DAILY (1/D)
     Dates: start: 20110201
  18. FORTEO [Suspect]
     Dosage: 20 UG, QD
  19. ZELAPAR [Concomitant]
  20. DIGOXIN [Concomitant]

REACTIONS (30)
  - BLOOD POTASSIUM DECREASED [None]
  - FALL [None]
  - CONTUSION [None]
  - INSOMNIA [None]
  - UPPER LIMB FRACTURE [None]
  - PAIN IN EXTREMITY [None]
  - WEIGHT DECREASED [None]
  - HEART VALVE INCOMPETENCE [None]
  - BLOOD ELECTROLYTES DECREASED [None]
  - HAND FRACTURE [None]
  - COUGH [None]
  - CARDIAC FAILURE CONGESTIVE [None]
  - DRY MOUTH [None]
  - PRODUCT TASTE ABNORMAL [None]
  - FATIGUE [None]
  - ATRIAL FIBRILLATION [None]
  - INFECTION [None]
  - TOOTH FRACTURE [None]
  - BONE PAIN [None]
  - INJECTION SITE HAEMATOMA [None]
  - CORONARY ARTERY OCCLUSION [None]
  - RIB FRACTURE [None]
  - MUSCULOSKELETAL DISCOMFORT [None]
  - NAUSEA [None]
  - INTENTIONAL DRUG MISUSE [None]
  - WRIST FRACTURE [None]
  - MOUTH INJURY [None]
  - WALKING AID USER [None]
  - PAIN [None]
  - BLOOD CALCIUM INCREASED [None]
